FAERS Safety Report 14783347 (Version 1)
Quarter: 2018Q2

REPORT INFORMATION
  Report Type: Spontaneous
  Country: DE (occurrence: DE)
  Receive Date: 20180420
  Receipt Date: 20180420
  Transmission Date: 20180711
  Serious: Yes (Hospitalization)
  Sender: FDA-Public Use
  Company Number: DE-BAYER-2018-074472

PATIENT
  Age: 72 Year
  Sex: Female

DRUGS (10)
  1. ACETYLSALICYLIC ACID({=100 MG) [Suspect]
     Active Substance: ASPIRIN
     Dosage: 100 MG, QD
  2. ZYLORIC [Concomitant]
     Active Substance: ALLOPURINOL
     Dosage: 100 MG, QD
  3. HYDROCORTISON [Suspect]
     Active Substance: HYDROCORTISONE
     Dosage: 10 MG, QD
  4. ASTONIN-H [Suspect]
     Active Substance: FLUDROCORTISONE
     Dosage: 0.5 DF, QD
  5. LEVOTHYROXINE SODIUM. [Concomitant]
     Active Substance: LEVOTHYROXINE SODIUM
     Dosage: 50 ?G, QD
  6. CARVEDILOL. [Concomitant]
     Active Substance: CARVEDILOL
     Dosage: 6.25 MG, QID
  7. NEXIUM-MUPS [Concomitant]
     Dosage: 20 MG, QD
  8. AMLODIPIN [Concomitant]
     Active Substance: AMLODIPINE BESYLATE
     Dosage: 5 MG, QD
  9. HYDROCORTISON [Suspect]
     Active Substance: HYDROCORTISONE
     Dosage: 0.5 DF, BID
  10. PAZOPANIB [Suspect]
     Active Substance: PAZOPANIB
     Dosage: 400 MG, QD

REACTIONS (1)
  - Anaemia [Unknown]

NARRATIVE: CASE EVENT DATE: 20160503
